FAERS Safety Report 5628685-2 (Version None)
Quarter: 2008Q1

REPORT INFORMATION
  Report Type: 
  Country: None (occurrence: None)
  Receive Date: 20080215
  Receipt Date: 20080215
  Transmission Date: 20080703
  Serious: No
  Sender: FDA-Public Use
  Company Number: None

PATIENT
  Age: 60 Year
  Sex: Female
  Weight: 61.2356 kg

DRUGS (1)
  1. CHLORDIAZEPOXIDE HCL W/ CLIDINIUM BROMIDE [Suspect]
     Indication: IRRITABLE BOWEL SYNDROME
     Dosage: 5MG/2.5

REACTIONS (3)
  - ABDOMINAL PAIN UPPER [None]
  - CONSTIPATION [None]
  - PAIN [None]
